FAERS Safety Report 5239217-5 (Version None)
Quarter: 2007Q1

REPORT INFORMATION
  Report Type: 
  Country: None (occurrence: None)
  Receive Date: 20061208
  Receipt Date: 20050602
  Transmission Date: 20070707
  Serious: Yes (Other)
  Sender: FDA-Public Use
  Company Number: 2005UW08566

PATIENT
  Age: 63 Year
  Sex: Female
  Weight: 72.121 kg

DRUGS (2)
  1. CRESTOR [Suspect]
     Indication: BLOOD CHOLESTEROL INCREASED
     Dosage: 20 MG PO
     Route: 048
     Dates: start: 20040101, end: 20050501
  2. NIASPAN [Concomitant]

REACTIONS (3)
  - BLOOD TEST ABNORMAL [None]
  - LARYNGITIS [None]
  - PROTEINURIA [None]
